FAERS Safety Report 7266579-X (Version None)
Quarter: 2011Q1

REPORT INFORMATION
  Report Type: 
  Country: None (occurrence: None)
  Receive Date: 20110131
  Receipt Date: 20110117
  Transmission Date: 20110831
  Serious: Yes (Hospitalization, Other)
  Sender: FDA-Public Use
  Company Number: US-CELGENEUS-163-C5013-11011633

PATIENT
  Sex: Male
  Weight: 71.278 kg

DRUGS (39)
  1. CC-5013\PLACEBO [Suspect]
     Route: 048
     Dates: start: 20100225, end: 20100304
  2. NEUPOGEN [Concomitant]
     Route: 058
     Dates: start: 20100305, end: 20100307
  3. BISACODYL [Concomitant]
     Route: 048
     Dates: start: 20100304, end: 20100307
  4. XANAX [Concomitant]
     Route: 048
     Dates: start: 20100304, end: 20100307
  5. NYSTATIN [Concomitant]
     Route: 048
  6. DILAUDID [Concomitant]
     Dosage: 0.5-1MG
     Route: 065
     Dates: start: 20100304, end: 20100306
  7. SODIUM CHLORIDE [Concomitant]
     Dosage: 100ML/HR
     Route: 048
     Dates: start: 20100307, end: 20100307
  8. ALBUTEROL SULFATE [Concomitant]
     Route: 065
     Dates: start: 20100304, end: 20100305
  9. DIPENHYDRAMINE [Concomitant]
     Dosage: 25-50MG
     Route: 051
     Dates: start: 20100304, end: 20100307
  10. COMPAZINE [Concomitant]
     Route: 065
  11. CC-5013\PLACEBO [Suspect]
     Indication: PROSTATE CANCER
     Route: 048
     Dates: start: 20100204
  12. DOCETAXEL [Suspect]
     Indication: PROSTATE CANCER
     Route: 065
     Dates: start: 20100204
  13. COLACE [Concomitant]
     Route: 048
     Dates: start: 20100304, end: 20100307
  14. MAGNESIUM HYDROXIDE [Concomitant]
     Route: 048
     Dates: start: 20100304, end: 20100307
  15. TYLENOL-500 [Concomitant]
     Dosage: 325-650MG
     Route: 048
     Dates: start: 20100304, end: 20100307
  16. VICODIN [Concomitant]
     Dosage: 5-500MG
     Route: 048
     Dates: start: 20100304, end: 20100307
  17. FLUCONAZOLE [Concomitant]
     Route: 065
  18. SOLU-MEDROL [Concomitant]
     Route: 051
     Dates: start: 20100307, end: 20100307
  19. ZOSYN [Concomitant]
     Route: 051
     Dates: start: 20100304, end: 20100307
  20. MORPHINE SULFATE [Concomitant]
     Route: 051
     Dates: start: 20100305, end: 20100305
  21. DIPENHYDRAMINE [Concomitant]
     Dosage: 25-50MG
     Route: 048
     Dates: start: 20100304, end: 20100307
  22. FLOMAX [Concomitant]
     Route: 065
  23. ALBUTEROL SULFATE AND IPRATROPIUM BROMIDE [Concomitant]
     Dosage: 0.5/2.5
     Route: 065
     Dates: start: 20100305, end: 20100307
  24. DOCETAXEL [Suspect]
     Route: 065
     Dates: start: 20100225
  25. CALCIUM +D [Concomitant]
     Route: 048
     Dates: start: 20100307, end: 20100307
  26. NITROGLYCERIN [Concomitant]
     Route: 060
     Dates: start: 20100304, end: 20100307
  27. SODIUM BIPHOSPHATE [Concomitant]
     Route: 065
     Dates: start: 20100304, end: 20100307
  28. NEXIUM [Concomitant]
     Route: 051
     Dates: start: 20100304, end: 20100307
  29. PHENAZOPYRIDINE HCL TAB [Concomitant]
     Route: 065
  30. PREDNISONE [Suspect]
     Route: 048
     Dates: start: 20100204
  31. PREDNISONE [Suspect]
     Route: 048
     Dates: start: 20100225
  32. SOLU-MEDROL [Concomitant]
     Route: 051
     Dates: start: 20100306, end: 20100307
  33. CALCIUM GLUCONATE/DEXTROSE [Concomitant]
     Route: 051
     Dates: start: 20100304, end: 20100307
  34. OXYGEN [Concomitant]
     Route: 055
  35. VANCOMYCIN [Concomitant]
     Route: 065
     Dates: start: 20100304, end: 20100306
  36. PREDNISONE [Suspect]
     Route: 048
     Dates: start: 20100307, end: 20100307
  37. SOLU-MEDROL [Concomitant]
     Route: 051
     Dates: start: 20100305, end: 20100306
  38. POTASSIUM [Concomitant]
     Route: 065
     Dates: start: 20100304, end: 20100307
  39. MAGNESIUM [Concomitant]
     Route: 065
     Dates: start: 20100304, end: 20100306

REACTIONS (6)
  - URINARY TRACT INFECTION [None]
  - ABDOMINAL PAIN [None]
  - NEUTROPENIA [None]
  - CHILLS [None]
  - DEHYDRATION [None]
  - CHOLELITHIASIS [None]
